FAERS Safety Report 6304906-8 (Version None)
Quarter: 2009Q3

REPORT INFORMATION
  Report Type: 
  Country: None (occurrence: None)
  Receive Date: 20090811
  Receipt Date: 20090731
  Transmission Date: 20100115
  Serious: Yes (Hospitalization, Disabling)
  Sender: FDA-Public Use
  Company Number: AU-ELI_LILLY_AND_COMPANY-AU200812003176

PATIENT
  Sex: Female

DRUGS (3)
  1. CYMBALTA [Suspect]
     Indication: FIBROMYALGIA
     Dosage: 30 MG ONCE
     Route: 065
     Dates: start: 20081008, end: 20081008
  2. ACETAMINOPHEN AND CODEINE PHOSPHATE [Concomitant]
     Dosage: 6 MG, DAILY (1/D)
     Route: 065
  3. CELEBREX [Concomitant]
     Dosage: 200 MG, DAILY (1/D)
     Route: 065

REACTIONS (11)
  - ACTIVITIES OF DAILY LIVING IMPAIRED [None]
  - AGITATION [None]
  - ANXIETY [None]
  - CHEST PAIN [None]
  - FIBROMYALGIA [None]
  - HYPERREFLEXIA [None]
  - MUSCULAR WEAKNESS [None]
  - NECK PAIN [None]
  - PAIN IN EXTREMITY [None]
  - PARAESTHESIA [None]
  - SEROTONIN SYNDROME [None]
